FAERS Safety Report 23647162 (Version 2)
Quarter: 2024Q1

REPORT INFORMATION
  Report Type: Report from Study
  Country: CO (occurrence: CO)
  Receive Date: 20240319
  Receipt Date: 20240328
  Transmission Date: 20240410
  Serious: Yes (Death, Other)
  Sender: FDA-Public Use
  Company Number: CO-UCBSA-2024013498

PATIENT
  Age: 12 Year
  Sex: Male
  Weight: 17 kg

DRUGS (1)
  1. LACOSAMIDE [Suspect]
     Active Substance: LACOSAMIDE
     Indication: Epilepsy
     Dosage: 4 MILLILITER, 2X/DAY (BID), 12 HOURS
     Route: 048
     Dates: start: 20230327, end: 20240220

REACTIONS (2)
  - Cardio-respiratory arrest [Fatal]
  - Underweight [Unknown]

NARRATIVE: CASE EVENT DATE: 20240220
